FAERS Safety Report 8403177-6 (Version None)
Quarter: 2012Q2

REPORT INFORMATION
  Report Type: 
  Country: None (occurrence: None)
  Receive Date: 20120601
  Receipt Date: 20120522
  Transmission Date: 20120825
  Serious: Yes (Other)
  Sender: FDA-Public Use
  Company Number: US-JNJFOC-20120518433

PATIENT
  Sex: Female
  Weight: 58.51 kg

DRUGS (8)
  1. SERTRALINE HYDROCHLORIDE [Concomitant]
     Indication: NERVOUSNESS
     Route: 048
  2. REMICADE [Suspect]
     Indication: RHEUMATOID ARTHRITIS
     Route: 042
  3. VITAMIN D [Concomitant]
     Indication: BONE DISORDER
     Route: 048
  4. METHOTREXATE [Suspect]
     Indication: RHEUMATOID ARTHRITIS
     Route: 030
     Dates: end: 20120101
  5. RANITIDINE [Concomitant]
     Indication: GASTRIC DISORDER
     Route: 048
  6. FOLIC ACID [Concomitant]
     Route: 048
  7. REMICADE [Suspect]
     Indication: OSTEOARTHRITIS
     Route: 042
  8. ASPIRIN [Concomitant]
     Indication: GENERAL PHYSICAL CONDITION
     Route: 048

REACTIONS (9)
  - VITAMIN D DEFICIENCY [None]
  - SINUSITIS [None]
  - FEELING OF BODY TEMPERATURE CHANGE [None]
  - BLOOD URINE PRESENT [None]
  - PILOERECTION [None]
  - RHEUMATOID ARTHRITIS [None]
  - CHILLS [None]
  - RASH ERYTHEMATOUS [None]
  - RASH [None]
